FAERS Safety Report 6742127-5 (Version None)
Quarter: 2010Q2

REPORT INFORMATION
  Report Type: 
  Country: None (occurrence: None)
  Receive Date: 20100526
  Receipt Date: 20100519
  Transmission Date: 20101027
  Serious: Yes (Death, Hospitalization)
  Sender: FDA-Public Use
  Company Number: BE-SANOFI-AVENTIS-2010SA022261

PATIENT
  Age: 83 Year
  Sex: Male
  Weight: 83 kg

DRUGS (12)
  1. BLINDED THERAPY [Suspect]
     Route: 042
     Dates: start: 20100107, end: 20100107
  2. BLINDED THERAPY [Suspect]
     Route: 042
     Dates: start: 20100408, end: 20100408
  3. DOCETAXEL [Suspect]
     Route: 042
     Dates: start: 20100107, end: 20100107
  4. DOCETAXEL [Suspect]
     Route: 042
     Dates: start: 20100408, end: 20100408
  5. PREDNISONE TAB [Suspect]
     Route: 048
     Dates: start: 20100107, end: 20100408
  6. DIAMICRON [Concomitant]
     Dates: start: 20090408
  7. COZAAR [Concomitant]
     Dates: start: 20090408
  8. ASAFLOW [Concomitant]
     Dates: start: 20090408
  9. KREDEX [Concomitant]
     Dates: start: 20090408
  10. SINGULAIR [Concomitant]
     Dates: start: 20091112
  11. DEXPANTHENOL [Concomitant]
     Dates: start: 20100106
  12. CORDARONE [Concomitant]
     Dates: start: 20100116

REACTIONS (2)
  - ESCHERICHIA URINARY TRACT INFECTION [None]
  - MULTI-ORGAN FAILURE [None]
